FAERS Safety Report 5099761-0 (Version None)
Quarter: 2006Q3

REPORT INFORMATION
  Report Type: 
  Country: None (occurrence: None)
  Receive Date: 20060908
  Receipt Date: 20060711
  Transmission Date: 20061208
  Serious: Yes (Hospitalization)
  Sender: FDA-Public Use
  Company Number: 2006UW14235

PATIENT
  Age: 53 Year
  Sex: Male
  Weight: 81.6 kg

DRUGS (9)
  1. SEROQUEL [Suspect]
     Indication: BIPOLAR DISORDER
     Route: 048
  2. ABILIFY [Concomitant]
  3. TRICOR [Concomitant]
  4. VASOTEC [Concomitant]
  5. LITHIUM [Concomitant]
  6. ASPIRIN [Concomitant]
  7. KLONOPIN [Concomitant]
  8. ZYPREXA [Concomitant]
  9. RISPERDAL [Concomitant]

REACTIONS (4)
  - BIPOLAR DISORDER [None]
  - BUNDLE BRANCH BLOCK RIGHT [None]
  - SCHIZOAFFECTIVE DISORDER [None]
  - SUICIDAL IDEATION [None]
